FAERS Safety Report 11785863 (Version 5)
Quarter: 2016Q1

REPORT INFORMATION
  Report Type: Spontaneous
  Country: JP (occurrence: JP)
  Receive Date: 20151130
  Receipt Date: 20160315
  Transmission Date: 20160525
  Serious: Yes (Other)
  Sender: FDA-Public Use
  Company Number: ALJP2015JP000938

PATIENT
  Age: 76 Year
  Sex: Male
  Weight: 76 kg

DRUGS (8)
  1. BSS PLUS [Suspect]
     Active Substance: CALCIUM CHLORIDE\DEXTROSE\MAGNESIUM CHLORIDE\OXIGLUTATIONE\POTASSIUM CHLORIDE\SODIUM BICARBONATE\SODIUM CHLORIDE\SODIUM PHOSPHATE\SODIUM PHOSPHATE, DIBASIC
     Indication: CATARACT OPERATION
     Dosage: 250 ML, QD
     Route: 031
     Dates: start: 20151108, end: 20151108
  2. BRONUCK [Concomitant]
     Active Substance: BROMFENAC SODIUM
     Indication: POSTOPERATIVE CARE
     Dosage: 0.2 ML, BID
     Route: 047
     Dates: start: 20151108, end: 20151109
  3. TIENAM [Concomitant]
     Active Substance: CILASTATIN SODIUM\IMIPENEM
     Indication: CATARACT OPERATION
     Dosage: (2.5 MG/ML) AT A DOSE OF 1ML IN RIGHT EYE
     Route: 031
     Dates: start: 20151108, end: 20151108
  4. MYDRIN P [Concomitant]
     Active Substance: PHENYLEPHRINE HYDROCHLORIDE\TROPICAMIDE
     Indication: MYDRIASIS
     Dosage: 0.2 ML, TID
     Route: 047
     Dates: start: 20151108, end: 20151108
  5. NEO SYNESIN [Concomitant]
     Active Substance: PHENYLEPHRINE HYDROCHLORIDE
     Indication: MYDRIASIS
     Dosage: 0.2 ML, TID
     Route: 047
     Dates: start: 20151108, end: 20151108
  6. BESTRON [Concomitant]
     Indication: INFECTION PROPHYLAXIS
     Dosage: 0.2 ML, QID
     Route: 047
     Dates: start: 20151107, end: 20151113
  7. CRAVIT [Concomitant]
     Active Substance: LEVOFLOXACIN
     Indication: INFECTION PROPHYLAXIS
     Dosage: 0.2 ML, QID
     Route: 047
     Dates: start: 20151107, end: 20160112
  8. BOSMIN [Concomitant]
     Active Substance: EPINEPHRINE
     Indication: CATARACT OPERATION
     Dosage: (0.2 MG) AT A DOSE OF 0.2 ML IN RIGHT EYE
     Route: 031
     Dates: start: 20151108, end: 20151108

REACTIONS (7)
  - Corneal disorder [Not Recovered/Not Resolved]
  - Corneal opacity [Not Recovered/Not Resolved]
  - Corneal degeneration [Not Recovered/Not Resolved]
  - Visual acuity reduced [Not Recovered/Not Resolved]
  - Off label use [Recovered/Resolved]
  - Corneal oedema [Not Recovered/Not Resolved]
  - Posterior capsule rupture [Unknown]

NARRATIVE: CASE EVENT DATE: 20151108
